FAERS Safety Report 17567955 (Version 2)
Quarter: 2020Q2

REPORT INFORMATION
  Report Type: Report from Study
  Country: US (occurrence: US)
  Receive Date: 20200320
  Receipt Date: 20200508
  Transmission Date: 20200713
  Serious: Yes (Hospitalization)
  Sender: FDA-Public Use
  Company Number: US-EISAI MEDICAL RESEARCH-EC-2020-069602

PATIENT
  Age: 75 Year
  Sex: Female
  Weight: 61 kg

DRUGS (19)
  1. FLUTICASONE PROPIONATE. [Concomitant]
     Active Substance: FLUTICASONE PROPIONATE
  2. ASPIR [Concomitant]
     Active Substance: ASPIRIN
  3. ALBUTEROL SULFATE. [Concomitant]
     Active Substance: ALBUTEROL SULFATE
  4. OXYCODONE-ACETAMINOPHEN [Concomitant]
     Active Substance: ACETAMINOPHEN\OXYCODONE HYDROCHLORIDE
  5. AMLODIPINE BESYLATE. [Concomitant]
     Active Substance: AMLODIPINE BESYLATE
  6. VITAMIN C [Concomitant]
     Active Substance: ASCORBIC ACID
  7. VITAMIN D3 [Concomitant]
     Active Substance: CHOLECALCIFEROL
  8. ALPRAZOLAM. [Concomitant]
     Active Substance: ALPRAZOLAM
  9. PREDNISONE. [Concomitant]
     Active Substance: PREDNISONE
  10. AMLODIPINE BESYLATE. [Concomitant]
     Active Substance: AMLODIPINE BESYLATE
  11. LENVIMA [Suspect]
     Active Substance: LENVATINIB
     Indication: THYROID CANCER
     Dosage: DRUG ADMINISTERED VIA PEG TUBE.
     Route: 050
     Dates: start: 20200125, end: 202002
  12. CALCITRIOL. [Concomitant]
     Active Substance: CALCITRIOL
  13. OMEPRAZOLE. [Concomitant]
     Active Substance: OMEPRAZOLE
  14. CITALOPRAM [Concomitant]
     Active Substance: CITALOPRAM HYDROBROMIDE
  15. POTASSIUM CHLORIDE. [Concomitant]
     Active Substance: POTASSIUM CHLORIDE
  16. OXYBUTYNIN CHLORIDE. [Concomitant]
     Active Substance: OXYBUTYNIN CHLORIDE
  17. LENVIMA [Suspect]
     Active Substance: LENVATINIB
     Dosage: DRUG ADMINISTERED VIA PEG TUBE.
     Route: 050
     Dates: start: 202002
  18. STOOL SOFTENER-LAXATIVE [Concomitant]
  19. LEVOTHYROXINE SODIUM. [Concomitant]
     Active Substance: LEVOTHYROXINE SODIUM

REACTIONS (17)
  - Device breakage [Unknown]
  - Constipation [Unknown]
  - Pain [Unknown]
  - Blood pressure increased [Unknown]
  - Cough [Unknown]
  - Pneumonia [Unknown]
  - Diarrhoea [Unknown]
  - Thirst [Unknown]
  - Oropharyngeal pain [Unknown]
  - Eye irritation [Unknown]
  - Throat irritation [Unknown]
  - Muscle spasms [Unknown]
  - Headache [Unknown]
  - Blood pressure decreased [Unknown]
  - Dyspepsia [Unknown]
  - Malignant neoplasm progression [Unknown]
  - Tongue discomfort [Unknown]

NARRATIVE: CASE EVENT DATE: 2020
